FAERS Safety Report 15784347 (Version 2)
Quarter: 2019Q1

REPORT INFORMATION
  Report Type: Report from Study
  Country: US (occurrence: US)
  Receive Date: 20190103
  Receipt Date: 20190119
  Transmission Date: 20190417
  Serious: Yes (Other)
  Sender: FDA-Public Use
  Company Number: US-TEVA-2018-US-993419

PATIENT
  Age: 52 Month
  Sex: Male

DRUGS (5)
  1. NITROUS OXIDE. [Suspect]
     Active Substance: NITROUS OXIDE
     Indication: ANAESTHESIA
     Dosage: MAXIMUM END TIDAL NITROUS OXIDE OF 60.2%
     Route: 055
  2. MELPHALAN. [Suspect]
     Active Substance: MELPHALAN
     Indication: CONGENITAL RETINOBLASTOMA
     Dosage: INFUSION; ADMINISTERED VIA THE OPHTHALMIC ARTERY
     Route: 031
  3. CARBOPLATIN. [Suspect]
     Active Substance: CARBOPLATIN
     Indication: CONGENITAL RETINOBLASTOMA
     Dosage: INFUSION; ADMINISTERED VIA THE OPHTHALMIC ARTERY
     Route: 031
  4. TOPOTECAN [Suspect]
     Active Substance: TOPOTECAN HYDROCHLORIDE
     Indication: CONGENITAL RETINOBLASTOMA
     Dosage: INFUSION; ADMINISTERED VIA THE OPHTHALMIC ARTERY
     Route: 031
  5. HEPARIN [Concomitant]
     Active Substance: HEPARIN SODIUM
     Indication: PROPHYLAXIS
     Route: 065

REACTIONS (1)
  - Choroidal infarction [Unknown]
